FAERS Safety Report 4616072-5 (Version None)
Quarter: 2005Q1

REPORT INFORMATION
  Report Type: 
  Country: None (occurrence: None)
  Receive Date: 20050321
  Receipt Date: 20050311
  Transmission Date: 20050727
  Serious: Yes (Hospitalization)
  Sender: FDA-Public Use
  Company Number: 2005-03-0676

PATIENT
  Age: 71 Year
  Sex: Female

DRUGS (3)
  1. TEMODAL [Suspect]
     Indication: BRAIN NEOPLASM
     Dosage: SEE IMAGE
     Dates: start: 20041129, end: 20041204
  2. TEMODAL [Suspect]
     Indication: BRAIN NEOPLASM
     Dosage: SEE IMAGE
     Dates: start: 20041228, end: 20041231
  3. DEPAKENE [Suspect]
     Indication: EPILEPSY
     Dates: start: 20040915, end: 20050103

REACTIONS (3)
  - CHOLESTASIS [None]
  - CYTOLYTIC HEPATITIS [None]
  - JAUNDICE [None]
